FAERS Safety Report 18762489 (Version 2)
Quarter: 2021Q3

REPORT INFORMATION
  Report Type: Spontaneous
  Country: US (occurrence: US)
  Receive Date: 20210120
  Receipt Date: 20210721
  Transmission Date: 20211014
  Serious: No
  Sender: FDA-Public Use
  Company Number: US-SA-2021SA015578

PATIENT
  Sex: Female

DRUGS (9)
  1. CYCLOBENZAPRIN HYDROCHLORIDE [Concomitant]
     Active Substance: CYCLOBENZAPRINE HYDROCHLORIDE
  2. PRAVASTATIN. [Concomitant]
     Active Substance: PRAVASTATIN
  3. DUPIXENT [Suspect]
     Active Substance: DUPILUMAB
     Indication: DERMATITIS ATOPIC
     Dosage: 300 MG, QOW
     Route: 058
     Dates: start: 20200805
  4. TRAZODONE [Concomitant]
     Active Substance: TRAZODONE HYDROCHLORIDE
  5. TOPIRAMATE. [Concomitant]
     Active Substance: TOPIRAMATE
  6. HYDROCODONE [Concomitant]
     Active Substance: HYDROCODONE
  7. DILTIAZEM. [Concomitant]
     Active Substance: DILTIAZEM
  8. CARBIDOPA/LEVODOPA [Concomitant]
     Active Substance: CARBIDOPA\LEVODOPA
  9. MORPHINE SULFATE. [Concomitant]
     Active Substance: MORPHINE SULFATE

REACTIONS (5)
  - Sleep disorder [Not Recovered/Not Resolved]
  - Dermatitis atopic [Not Recovered/Not Resolved]
  - Alopecia [Not Recovered/Not Resolved]
  - Rash [Not Recovered/Not Resolved]
  - Discomfort [Not Recovered/Not Resolved]
